FAERS Safety Report 8479205-9 (Version None)
Quarter: 2012Q2

REPORT INFORMATION
  Report Type: 
  Country: None (occurrence: None)
  Receive Date: 20120629
  Receipt Date: 20120619
  Transmission Date: 20120825
  Serious: Yes (Other)
  Sender: FDA-Public Use
  Company Number: US-CELGENEUS-163-FK228-12063215

PATIENT

DRUGS (4)
  1. CALCIUM [Concomitant]
     Indication: SUPPLEMENTATION THERAPY
     Route: 065
  2. MAGNESIUM SULFATE [Concomitant]
     Indication: SUPPLEMENTATION THERAPY
     Route: 065
  3. ROMIDEPSIN [Suspect]
     Dosage: 14 MILLIGRAM/SQ. METER
     Route: 041
  4. POTASSIUM ACETATE [Concomitant]
     Indication: SUPPLEMENTATION THERAPY
     Route: 065

REACTIONS (5)
  - CARDIOTOXICITY [None]
  - PLATELET COUNT DECREASED [None]
  - ELECTROCARDIOGRAM QT PROLONGED [None]
  - NAUSEA [None]
  - FATIGUE [None]
